FAERS Safety Report 5836093-4 (Version None)
Quarter: 2008Q3

REPORT INFORMATION
  Report Type: 
  Country: None (occurrence: None)
  Receive Date: 20080806
  Receipt Date: 20080725
  Transmission Date: 20090109
  Serious: Yes (Hospitalization, Other)
  Sender: FDA-Public Use
  Company Number: US-PFIZER INC-2008063047

PATIENT
  Sex: Female
  Weight: 56.7 kg

DRUGS (4)
  1. DILANTIN [Suspect]
  2. LYRICA [Suspect]
     Indication: PAIN
  3. XANAX [Suspect]
  4. PROZAC [Concomitant]

REACTIONS (5)
  - BIOPSY BONE MARROW [None]
  - IMPAIRED HEALING [None]
  - MENTAL DISORDER [None]
  - MENTAL STATUS CHANGES [None]
  - SURGERY [None]
